FAERS Safety Report 4886372-2 (Version None)
Quarter: 2006Q1

REPORT INFORMATION
  Report Type: 
  Country: None (occurrence: None)
  Receive Date: 20060120
  Receipt Date: 20051005
  Transmission Date: 20060701
  Serious: Yes (Hospitalization)
  Sender: FDA-Public Use
  Company Number: US-MERCK-0510USA03437

PATIENT
  Age: 48 Year
  Sex: Female
  Weight: 52 kg

DRUGS (4)
  1. VIOXX [Suspect]
     Indication: OSTEOARTHRITIS
     Route: 048
     Dates: start: 20040501, end: 20040922
  2. CLONAZEPAM [Concomitant]
     Route: 065
  3. TEMAZEPAM [Concomitant]
     Route: 065
  4. CENESTIN [Concomitant]
     Route: 065

REACTIONS (3)
  - CORONARY ARTERY DISEASE [None]
  - EMOTIONAL DISORDER [None]
  - MYOCARDIAL INFARCTION [None]
